FAERS Safety Report 15223347 (Version 3)
Quarter: 2018Q4

REPORT INFORMATION
  Report Type: Report from Study
  Country: None (occurrence: US)
  Receive Date: 20180731
  Receipt Date: 20181118
  Transmission Date: 20190204
  Serious: Yes (Other)
  Sender: FDA-Public Use
  Company Number: US-ABBVIE-17K-163-2085142-00

PATIENT
  Age: 47 Year
  Sex: Female

DRUGS (4)
  1. HUMIRA [Suspect]
     Active Substance: ADALIMUMAB
     Route: 058
     Dates: start: 2018, end: 20181025
  2. HUMIRA [Suspect]
     Active Substance: ADALIMUMAB
     Route: 058
     Dates: start: 2018, end: 20180724
  3. HUMIRA [Suspect]
     Active Substance: ADALIMUMAB
     Route: 058
     Dates: start: 20180918, end: 2018
  4. HUMIRA [Suspect]
     Active Substance: ADALIMUMAB
     Indication: ANKYLOSING SPONDYLITIS
     Route: 058
     Dates: end: 201806

REACTIONS (33)
  - Exostosis [Unknown]
  - Dust allergy [Not Recovered/Not Resolved]
  - Seasonal allergy [Not Recovered/Not Resolved]
  - Injection site pain [Unknown]
  - Impaired healing [Unknown]
  - Menopausal symptoms [Unknown]
  - Ankylosing spondylitis [Unknown]
  - Alopecia [Unknown]
  - Nasopharyngitis [Not Recovered/Not Resolved]
  - Sensitivity to weather change [Unknown]
  - Mite allergy [Not Recovered/Not Resolved]
  - Arthralgia [Not Recovered/Not Resolved]
  - Vitamin B12 deficiency [Unknown]
  - Blood potassium decreased [Not Recovered/Not Resolved]
  - Asthma [Not Recovered/Not Resolved]
  - Back pain [Not Recovered/Not Resolved]
  - Ovarian cyst [Unknown]
  - Heat exhaustion [Unknown]
  - Sinusitis [Not Recovered/Not Resolved]
  - Pain [Not Recovered/Not Resolved]
  - Abdominal pain [Unknown]
  - Fatigue [Unknown]
  - White blood cell count increased [Unknown]
  - Respiratory tract infection [Unknown]
  - Drug effect decreased [Unknown]
  - Musculoskeletal chest pain [Unknown]
  - Scleritis [Unknown]
  - Neck pain [Unknown]
  - Influenza like illness [Unknown]
  - Musculoskeletal pain [Unknown]
  - Vitamin D deficiency [Unknown]
  - Allergy to animal [Not Recovered/Not Resolved]
  - Cystitis [Unknown]

NARRATIVE: CASE EVENT DATE: 2017
